FAERS Safety Report 7106241 (Version 3)
Quarter: 2014Q3

REPORT INFORMATION
  Report Type: Spontaneous
  Country: US (occurrence: None)
  Receive Date: 20090827
  Receipt Date: 20140919
  Transmission Date: 20150326
  Serious: Yes (Hospitalization, Other)
  Sender: FDA-Public Use
  Company Number: 2008-01665

PATIENT
  Age: 50 Year
  Sex: Female
  Weight: 58.2 kg

DRUGS (18)
  1. VELCADE [Suspect]
     Active Substance: BORTEZOMIB
     Indication: MANTLE CELL LYMPHOMA
     Dosage: 1.3 MG/M2, UNK, IV BOLUS
     Route: 040
     Dates: start: 20080414, end: 20080418
  2. RITUXIMAB [Suspect]
     Active Substance: RITUXIMAB
     Indication: MANTLE CELL LYMPHOMA
     Dosage: 375 MG/M2, UNK, INTRAVENOUS
     Route: 042
     Dates: start: 20080414, end: 20080415
  3. CYCLOPHOSPHAMIDE. [Suspect]
     Active Substance: CYCLOPHOSPHAMIDE
     Indication: MANTLE CELL LYMPHOMA
     Dosage: 300 MG/M2, UNK, INTRAVENOUS
     Route: 042
     Dates: start: 20080414, end: 20080418
  4. MEVACOR [Concomitant]
     Active Substance: LOVASTATIN
  5. VINCRISTINE [Suspect]
     Active Substance: VINCRISTINE
     Indication: MANTLE CELL LYMPHOMA
     Dosage: 1 MG, UNK, IV BOLUS
     Route: 040
     Dates: start: 20080414, end: 20080417
  6. DEXAMETHASONE. [Suspect]
     Active Substance: DEXAMETHASONE
     Indication: MANTLE CELL LYMPHOMA
     Dosage: 40 MG, UNK, UNK
     Dates: start: 20080414, end: 20080418
  7. LEXAPRO [Concomitant]
     Active Substance: ESCITALOPRAM OXALATE
  8. ZANAFLEX [Concomitant]
     Active Substance: TIZANIDINE HYDROCHLORIDE
  9. VICODIN ES (PARACETAMOL, HYDROCODONE BITARTRATE) [Concomitant]
  10. ZYLOPRIM [Concomitant]
     Active Substance: ALLOPURINOL
  11. COMPAZINE [Concomitant]
     Active Substance: PROCHLORPERAZINE MALEATE
  12. ZOVIRAX [Concomitant]
     Active Substance: ACYCLOVIR
  13. DILAUDID [Concomitant]
     Active Substance: HYDROMORPHONE HYDROCHLORIDE
  14. LEVAQUIN [Concomitant]
     Active Substance: LEVOFLOXACIN
  15. DOXORUBICIN [Suspect]
     Active Substance: DOXORUBICIN
     Indication: MANTLE CELL LYMPHOMA
     Dosage: 25 MG/M2, UNK, INTRAVENOUS
     Route: 042
     Dates: start: 20080414, end: 20080416
  16. NEULASTA [Suspect]
     Active Substance: PEGFILGRASTIM
     Indication: MANTLE CELL LYMPHOMA
     Dosage: 6 MG, UNK, SUBCUTANEOUS
     Route: 058
     Dates: start: 20080414, end: 20080421
  17. PROVIGIL [Concomitant]
     Active Substance: MODAFINIL
  18. CYMBALTA [Concomitant]
     Active Substance: DULOXETINE HYDROCHLORIDE

REACTIONS (15)
  - Stomatitis [None]
  - Anaemia [None]
  - Back pain [None]
  - White blood cell count decreased [None]
  - Sepsis [None]
  - Red blood cell count decreased [None]
  - Infection [None]
  - Lymphocyte count decreased [None]
  - Neutrophil count decreased [None]
  - Haematocrit decreased [None]
  - Gingival pain [None]
  - Oral pain [None]
  - Bacteraemia [None]
  - Alopecia [None]
  - Haemoglobin decreased [None]

NARRATIVE: CASE EVENT DATE: 20080424
